FAERS Safety Report 4480676-3 (Version None)
Quarter: 2004Q4

REPORT INFORMATION
  Report Type: 
  Country: None (occurrence: None)
  Receive Date: 20041021
  Receipt Date: 20041012
  Transmission Date: 20050328
  Serious: Yes (Hospitalization)
  Sender: FDA-Public Use
  Company Number: JP-JNJFOC-20040700722

PATIENT
  Sex: Female
  Weight: 45 kg

DRUGS (11)
  1. REMICADE [Suspect]
     Route: 042
  2. REMICADE [Suspect]
     Route: 042
  3. REMICADE [Suspect]
     Route: 042
  4. REMICADE [Suspect]
     Indication: RHEUMATOID ARTHRITIS
     Route: 042
  5. METHOTREXATE [Concomitant]
     Indication: RHEUMATOID ARTHRITIS
     Dosage: ON 12-OCT-2004 REPORT, DOSE NOTED TO BE 6 MG/WEEK FROM 26-APR-2002 TO 18-JUN-2004
     Route: 049
  6. PREDONIN [Concomitant]
     Indication: RHEUMATOID ARTHRITIS
     Route: 049
  7. LOXONIN [Concomitant]
     Indication: RHEUMATOID ARTHRITIS
     Route: 049
  8. ASPARA CA [Concomitant]
     Indication: OSTEOPOROSIS
     Route: 049
  9. NIVADIL [Concomitant]
     Route: 049
  10. ANPLAG [Concomitant]
     Indication: ARTERIOSCLEROSIS
     Route: 049
  11. STARSIS [Concomitant]
     Route: 049

REACTIONS (1)
  - PERITONEAL TUBERCULOSIS [None]
